FAERS Safety Report 6125590-2 (Version None)
Quarter: 2009Q1

REPORT INFORMATION
  Report Type: 
  Country: None (occurrence: None)
  Receive Date: 20090318
  Receipt Date: 20090313
  Transmission Date: 20090719
  Serious: Yes (Death, Life-Threatening, Hospitalization, Disabling)
  Sender: FDA-Public Use
  Company Number: 2009000690

PATIENT
  Age: 69 Year
  Sex: Male
  Weight: 62 kg

DRUGS (4)
  1. ERLOTINIB (ERLOTINIB) (TABLET) (ERLOTINIB) [Suspect]
     Indication: NON-SMALL CELL LUNG CANCER
     Dosage: (150 MG, QD), ORAL
     Route: 048
     Dates: start: 20090213
  2. ARQ 197 (CAPSULES) [Suspect]
     Indication: NON-SMALL CELL LUNG CANCER
     Dosage: (720 MG, BID), ORAL
     Route: 048
     Dates: start: 20090213
  3. BISOPROLOL FUMARATE [Concomitant]
  4. OMEPRAZOLE [Concomitant]

REACTIONS (7)
  - ABDOMINAL PAIN [None]
  - ATRIAL FIBRILLATION [None]
  - BLOOD POTASSIUM DECREASED [None]
  - DEHYDRATION [None]
  - DIARRHOEA [None]
  - LEUKOPENIA [None]
  - PERFORMANCE STATUS DECREASED [None]
